FAERS Safety Report 21621246 (Version 1)
Quarter: 2022Q4

REPORT INFORMATION
  Report Type: Spontaneous
  Country: US (occurrence: US)
  Receive Date: 20221121
  Receipt Date: 20221121
  Transmission Date: 20230113
  Serious: No
  Sender: FDA-Public Use
  Company Number: US-LUPIN PHARMACEUTICALS INC.-2022-13568

PATIENT

DRUGS (3)
  1. DROSPIRENONE\ETHINYL ESTRADIOL\LEVOMEFOLATE CALCIUM [Suspect]
     Active Substance: DROSPIRENONE\ETHINYL ESTRADIOL\LEVOMEFOLATE CALCIUM
     Indication: Contraception
     Dosage: 1 DOSAGE FORM, QD, 1 TABLET ONCE DAILY BY MOUTH
     Route: 048
     Dates: start: 20221023
  2. HUMALOG [Concomitant]
     Active Substance: INSULIN LISPRO
     Indication: Type 1 diabetes mellitus
     Dosage: 25 DOSAGE FORM, QD, 25 UNITS DAILY
     Route: 065
  3. ALLERFEX [Concomitant]
     Indication: Hypersensitivity
     Dosage: 1 DOSAGE FORM, BID, 1 TABLET TWICE DAILY
     Route: 065

REACTIONS (1)
  - Blood glucose increased [Not Recovered/Not Resolved]

NARRATIVE: CASE EVENT DATE: 20221101
